FAERS Safety Report 5269814-2 (Version None)
Quarter: 2007Q1

REPORT INFORMATION
  Report Type: 
  Country: None (occurrence: None)
  Receive Date: 20070320
  Receipt Date: 20070312
  Transmission Date: 20070707
  Serious: Yes (Hospitalization)
  Sender: FDA-Public Use
  Company Number: 2007CG00418

PATIENT
  Age: 53 Year
  Sex: Female

DRUGS (11)
  1. DIPRIVAN [Suspect]
     Indication: ANAESTHESIA
     Route: 042
     Dates: start: 20070130, end: 20070130
  2. ACUPAN [Suspect]
     Dates: start: 20070130, end: 20070130
  3. ATARAX [Suspect]
     Route: 048
  4. DROLEPTAN [Suspect]
     Dates: start: 20070130, end: 20070130
  5. KETOPROFEN [Suspect]
     Dates: start: 20070130, end: 20070130
  6. CEFAZOLIN [Suspect]
     Dates: start: 20070130, end: 20070130
  7. TRACRIUM [Suspect]
     Dates: start: 20070130, end: 20070130
  8. MORPHINE [Suspect]
     Dates: start: 20070130, end: 20070130
  9. PERFALGAN [Concomitant]
  10. LOVENOX [Concomitant]
  11. TEMGESIC [Concomitant]

REACTIONS (2)
  - LEUKOPENIA [None]
  - NEUTROPENIA [None]
